FAERS Safety Report 21590856 (Version 1)
Quarter: 2022Q4

REPORT INFORMATION
  Report Type: Spontaneous
  Country: US (occurrence: None)
  Receive Date: 20221111
  Receipt Date: 20221111
  Transmission Date: 20230112
  Serious: No
  Sender: FDA-Public Use
  Company Number: None

PATIENT
  Age: 38 Year
  Sex: Male
  Weight: 75.75 kg

DRUGS (1)
  1. COSENTYX [Suspect]
     Active Substance: SECUKINUMAB
     Indication: Ankylosing spondylitis
     Dosage: OTHER QUANTITY : 300MG (2 PENS);?FREQUENCY : AS DIRECTED;?
     Route: 058
     Dates: start: 202210

REACTIONS (3)
  - Respiratory disorder [None]
  - Epistaxis [None]
  - Rhinorrhoea [None]
